FAERS Safety Report 10217388 (Version 1)
Quarter: 2014Q2

REPORT INFORMATION
  Report Type: Report from Study
  Country: AU (occurrence: AU)
  Receive Date: 20140604
  Receipt Date: 20140604
  Transmission Date: 20141212
  Serious: Yes (Death)
  Sender: FDA-Public Use
  Company Number: AU-INCYTE CORPORATION-2014IN001461

PATIENT
  Sex: Male

DRUGS (2)
  1. JAKAVI [Suspect]
     Indication: MYELOFIBROSIS
     Dosage: 15 MG, BID
     Route: 065
  2. JAKAVI [Suspect]
     Dosage: 10 MG, BID
     Route: 065

REACTIONS (3)
  - Bladder cancer [Fatal]
  - Second primary malignancy [Fatal]
  - Pancytopenia [Fatal]
